FAERS Safety Report 4780397-3 (Version None)
Quarter: 2005Q3

REPORT INFORMATION
  Report Type: 
  Country: None (occurrence: None)
  Receive Date: 20050926
  Receipt Date: 20050914
  Transmission Date: 20060218
  Serious: Yes (Other)
  Sender: FDA-Public Use
  Company Number: 216677

PATIENT
  Age: 56 Year
  Sex: Male

DRUGS (3)
  1. RITUXAN [Suspect]
     Indication: NON-HODGKIN'S LYMPHOMA
     Dosage: 24 MG, UNK; INTRAVENOUS
     Route: 042
     Dates: start: 20050728, end: 20050728
  2. ACETAMINOPHEN [Concomitant]
  3. DIPHENHYDRAMINE HCL [Concomitant]

REACTIONS (10)
  - BLOOD PRESSURE INCREASED [None]
  - CEREBRAL HAEMORRHAGE [None]
  - CHILLS [None]
  - HAEMOGLOBIN DECREASED [None]
  - HEMIPLEGIA [None]
  - NEUTROPHIL PERCENTAGE INCREASED [None]
  - PARALYSIS [None]
  - PLATELET COUNT INCREASED [None]
  - PYREXIA [None]
  - SOMNOLENCE [None]
